FAERS Safety Report 6686601-9 (Version None)
Quarter: 2010Q2

REPORT INFORMATION
  Report Type: 
  Country: None (occurrence: None)
  Receive Date: 20100415
  Receipt Date: 20100405
  Transmission Date: 20101027
  Serious: Yes (Life-Threatening, Hospitalization)
  Sender: FDA-Public Use
  Company Number: 2010AC000248

PATIENT
  Sex: Female

DRUGS (1)
  1. DIGOXIN [Suspect]
     Dosage: 0.125 MG;PO
     Route: 048
     Dates: start: 20080319, end: 20080428

REACTIONS (9)
  - AMNESIA [None]
  - COGNITIVE DISORDER [None]
  - DISCOMFORT [None]
  - DYSPNOEA [None]
  - OEDEMA PERIPHERAL [None]
  - OVERDOSE [None]
  - SPEECH DISORDER [None]
  - THERAPEUTIC AGENT TOXICITY [None]
  - UNEVALUABLE EVENT [None]
